FAERS Safety Report 6381711-8 (Version None)
Quarter: 2009Q3

REPORT INFORMATION
  Report Type: 
  Country: None (occurrence: None)
  Receive Date: 20090930
  Receipt Date: 20090918
  Transmission Date: 20100115
  Serious: Yes (Other)
  Sender: FDA-Public Use
  Company Number: PHHY2009DE15817

PATIENT
  Sex: Female

DRUGS (7)
  1. RASILEZ [Suspect]
     Dosage: 150 MG/DAY
     Dates: start: 20081014, end: 20090113
  2. DIOVAN HCT [Concomitant]
     Dosage: 1 DF, QD
  3. AMLODIPINE [Concomitant]
     Dosage: 5 MG/DAY
  4. METOPROLOL SUCCINATE [Concomitant]
     Dosage: 1 DF, QD
  5. LEVOTHYROXINE SODIUM [Concomitant]
     Dosage: 100 UG /DAY
  6. SIMVASTATIN [Concomitant]
     Dosage: 20 MG/DAY
  7. ACETYLSALICYLIC ACID [Concomitant]
     Dosage: 100 MG/DAY

REACTIONS (2)
  - HEADACHE [None]
  - HYPERTENSIVE CRISIS [None]
